FAERS Safety Report 8129695 (Version 3)
Quarter: 2013Q4

REPORT INFORMATION
  Report Type: Spontaneous
  Country: US (occurrence: US)
  Receive Date: 20110909
  Receipt Date: 20131122
  Transmission Date: 20140711
  Serious: Yes (Hospitalization)
  Sender: FDA-Public Use
  Company Number: US-US-EMD SERONO, INC.-232452J10USA

PATIENT
  Sex: Female

DRUGS (13)
  1. REBIF [Suspect]
     Indication: MULTIPLE SCLEROSIS
     Route: 058
     Dates: start: 20081218
  2. NEURONTIN [Concomitant]
  3. MYSOLINE [Concomitant]
  4. PRILOSEC [Concomitant]
     Indication: EPIGASTRIC DISCOMFORT
  5. PERCOCET [Concomitant]
     Indication: PAIN
  6. METHADONE [Concomitant]
     Indication: PAIN
  7. POTASSIUM [Concomitant]
     Indication: BLOOD POTASSIUM DECREASED
  8. ZOLOFT [Concomitant]
     Indication: DEPRESSION
     Dates: start: 2009
  9. PAMELOR [Concomitant]
     Indication: DEPRESSION
     Dates: start: 2009
  10. SEROQUEL [Concomitant]
     Indication: INSOMNIA
     Dates: start: 2009
  11. LEVOTHYROXINE [Concomitant]
     Indication: HYPOTHYROIDISM
  12. IMITREX [Concomitant]
     Indication: MIGRAINE
  13. PHENERGAN [Concomitant]
     Indication: NAUSEA

REACTIONS (3)
  - Convulsion [Recovering/Resolving]
  - Drug interaction [Unknown]
  - Multiple sclerosis [Unknown]
